FAERS Safety Report 8430210-8 (Version None)
Quarter: 2012Q2

REPORT INFORMATION
  Report Type: 
  Country: None (occurrence: None)
  Receive Date: 20120323
  Receipt Date: 20110825
  Transmission Date: 20120825
  Serious: Yes (Hospitalization)
  Sender: FDA-Public Use
  Company Number: 163-21880-11083109

PATIENT
  Age: 66 Year
  Sex: Female

DRUGS (7)
  1. ONDANSETRON HCL (ONDANSETRON HYDROCHLORIDE) [Concomitant]
  2. OXYCONTIN [Concomitant]
  3. MIRALAX [Concomitant]
  4. KLOR-CON [Concomitant]
  5. HYDROCHLOROTHIAZIDE [Concomitant]
  6. REVLIMID [Suspect]
     Indication: MULTIPLE MYELOMA
     Dosage: 10 MG, 1 IN 1 D, PO
     Route: 048
     Dates: start: 20110406
  7. DULCOLAX [Concomitant]

REACTIONS (1)
  - HYPOAESTHESIA [None]
